FAERS Safety Report 15209481 (Version 1)
Quarter: 2018Q3

REPORT INFORMATION
  Report Type: Spontaneous
  Country: GB (occurrence: GB)
  Receive Date: 20180727
  Receipt Date: 20180727
  Transmission Date: 20181010
  Serious: Yes (Other)
  Sender: FDA-Public Use
  Company Number: GB-ASTRAZENECA-2018SE94197

PATIENT
  Age: 74 Year
  Sex: Female
  Weight: 75 kg

DRUGS (5)
  1. METFORMIN [Concomitant]
     Active Substance: METFORMIN HYDROCHLORIDE
     Dates: start: 20160629
  2. BETAMETHASONE VALERATE. [Concomitant]
     Active Substance: BETAMETHASONE VALERATE
     Dates: start: 20160429
  3. LEVOTHYROXINE. [Concomitant]
     Active Substance: LEVOTHYROXINE
     Dates: start: 20150121
  4. OTOMIZE [Concomitant]
     Active Substance: DEXAMETHASONE\NEOMYCIN SULFATE
     Dates: start: 20180523, end: 20180530
  5. DAPAGLIFLOZIN. [Suspect]
     Active Substance: DAPAGLIFLOZIN
     Route: 048
     Dates: start: 20160623

REACTIONS (2)
  - Muscle spasms [Recovered/Resolved]
  - Vulvovaginal pruritus [Recovered/Resolved]

NARRATIVE: CASE EVENT DATE: 20180501
